FAERS Safety Report 12410321 (Version 1)
Quarter: 2016Q2

REPORT INFORMATION
  Report Type: Spontaneous
  Country: US (occurrence: None)
  Receive Date: 20160526
  Receipt Date: 20160526
  Transmission Date: 20160815
  Serious: Yes (Other)
  Sender: FDA-Public Use
  Company Number: None

PATIENT
  Age: 46 Year
  Sex: Male

DRUGS (1)
  1. ZOLPIDEM [Suspect]
     Active Substance: ZOLPIDEM\ZOLPIDEM TARTRATE
     Indication: INTENTIONAL PRODUCT MISUSE
     Dates: start: 20150901, end: 20160124

REACTIONS (2)
  - Sexual abuse [None]
  - Wrong patient received medication [None]

NARRATIVE: CASE EVENT DATE: 20160124
